FAERS Safety Report 10026632 (Version 1)
Quarter: 2014Q1

REPORT INFORMATION
  Report Type: Spontaneous
  Country: US (occurrence: US)
  Receive Date: 20140321
  Receipt Date: 20140321
  Transmission Date: 20141002
  Serious: No
  Sender: FDA-Public Use
  Company Number: US-009507513-1403USA008202

PATIENT
  Sex: Male

DRUGS (1)
  1. PROSCAR [Suspect]
     Dosage: UNK
     Route: 048
     Dates: start: 2013

REACTIONS (2)
  - Semen volume decreased [Unknown]
  - Male sexual dysfunction [Unknown]
